FAERS Safety Report 6491649-3 (Version None)
Quarter: 2009Q4

REPORT INFORMATION
  Report Type: 
  Country: None (occurrence: None)
  Receive Date: 20091207
  Receipt Date: 20091127
  Transmission Date: 20100525
  Serious: Yes (Other)
  Sender: FDA-Public Use
  Company Number: 2009SP038574

PATIENT
  Sex: Male

DRUGS (2)
  1. PEG-INTRON [Suspect]
     Indication: HEPATITIS C
  2. REBETOL [Suspect]
     Indication: HEPATITIS C

REACTIONS (7)
  - CRYOGLOBULINAEMIA [None]
  - FOLLICULITIS [None]
  - HYPOAESTHESIA [None]
  - PURULENCE [None]
  - SKIN LESION [None]
  - VISUAL ACUITY TESTS ABNORMAL [None]
  - WHITE BLOOD CELL COUNT DECREASED [None]
